FAERS Safety Report 15425865 (Version 1)
Quarter: 2018Q3

REPORT INFORMATION
  Report Type: Spontaneous
  Country: AU (occurrence: AU)
  Receive Date: 20180925
  Receipt Date: 20180925
  Transmission Date: 20181010
  Serious: Yes (Other)
  Sender: FDA-Public Use
  Company Number: AU-PFIZER INC-2018378873

PATIENT

DRUGS (2)
  1. DILANTIN [Suspect]
     Active Substance: PHENYTOIN
     Dosage: 300 MG, 1X/DAY AT NIGHT BEFORE BED
  2. DILANTIN [Suspect]
     Active Substance: PHENYTOIN
     Indication: SCAR
     Dosage: UNK

REACTIONS (4)
  - Apparent death [Unknown]
  - Seizure [Unknown]
  - Product use in unapproved indication [Unknown]
  - Insomnia [Unknown]
